FAERS Safety Report 5147790-0 (Version None)
Quarter: 2006Q4

REPORT INFORMATION
  Report Type: 
  Country: None (occurrence: None)
  Receive Date: 20061110
  Receipt Date: 20060719
  Transmission Date: 20070319
  Serious: Yes (Hospitalization, Other)
  Sender: FDA-Public Use
  Company Number: PHFR2006GB02286

PATIENT
  Age: 36 Year
  Sex: Female

DRUGS (15)
  1. CLOZARIL [Suspect]
     Indication: SCHIZOPHRENIA
     Dosage: 250MG / DAY
     Route: 048
     Dates: start: 20060605, end: 20060713
  2. CLOZARIL [Suspect]
     Route: 048
     Dates: end: 20050519
  3. FUROSEMIDE [Concomitant]
     Indication: HYPERTENSION
     Route: 065
  4. RAMIPRIL [Concomitant]
     Indication: HYPERTENSION
     Route: 048
  5. ATORVASTATIN CALCIUM [Concomitant]
     Route: 065
  6. BENDROFLUAZIDE [Concomitant]
     Indication: HYPERTENSION
     Route: 065
  7. ARIPIPRAZOLE [Concomitant]
     Route: 065
  8. PERINDOPRIL ERBUMINE [Suspect]
     Dosage: 2 MG, QD
     Route: 048
  9. LANSOPRAZOLE [Suspect]
     Dosage: 30 MG, QD
     Route: 048
  10. FESOFOR [Suspect]
     Dosage: 200 MG, BID
     Route: 048
  11. FOLIC ACID [Suspect]
     Dosage: 5 MG, QD
     Route: 048
  12. TRIMETHOPRIM [Suspect]
     Indication: URINARY TRACT INFECTION
     Route: 065
  13. DIAZEPAM [Suspect]
     Dosage: PRN
     Route: 065
  14. ZOPICLONE [Suspect]
     Dosage: 3.75MG NOCTE
     Route: 065
  15. LACTULOSE [Suspect]
     Dosage: 10 ML, PRN
     Route: 065

REACTIONS (18)
  - ABDOMINAL TENDERNESS [None]
  - CARDIAC MURMUR [None]
  - CONSTIPATION [None]
  - DIABETES MELLITUS [None]
  - HIATUS HERNIA [None]
  - IRON DEFICIENCY ANAEMIA [None]
  - MALAISE [None]
  - MEAN CELL VOLUME DECREASED [None]
  - MONOCYTE COUNT INCREASED [None]
  - NEUTROPHIL COUNT INCREASED [None]
  - PHYSICAL ASSAULT [None]
  - PYREXIA [None]
  - SINUS TACHYCARDIA [None]
  - SKIN DISORDER [None]
  - STAPHYLOCOCCAL INFECTION [None]
  - THROMBOCYTHAEMIA [None]
  - URINARY TRACT INFECTION [None]
  - WHITE BLOOD CELL COUNT INCREASED [None]
